FAERS Safety Report 7862522-0 (Version None)
Quarter: 2011Q4

REPORT INFORMATION
  Report Type: 
  Country: None (occurrence: None)
  Receive Date: 20111026
  Receipt Date: 20111013
  Transmission Date: 20120403
  Serious: Yes (Hospitalization, Disabling)
  Sender: FDA-Public Use
  Company Number: GGEL20111001372

PATIENT
  Age: 13 Year
  Sex: Female
  Weight: 64.6 kg

DRUGS (2)
  1. VALPROATE SODIUM [Concomitant]
  2. TOPIRAMATE [Suspect]
     Indication: CONVULSION
     Dosage: 25 MILLIGRAM, 1 IN 1 D
     Dates: start: 20100101

REACTIONS (8)
  - DECREASED APPETITE [None]
  - PERSONALITY CHANGE [None]
  - EPILEPSY [None]
  - GRAND MAL CONVULSION [None]
  - WEIGHT DECREASED [None]
  - MALAISE [None]
  - DEPRESSION [None]
  - ALOPECIA [None]
